FAERS Safety Report 24266122 (Version 1)
Quarter: 2024Q3

REPORT INFORMATION
  Report Type: Report from Study
  Country: US (occurrence: US)
  Receive Date: 20240830
  Receipt Date: 20240830
  Transmission Date: 20241016
  Serious: No
  Sender: ACADIA PHARMACEUTICALS
  Company Number: US-ACADIA PHARMACEUTICALS INC.-ACA-2024-PIM-004573

PATIENT
  Sex: Male

DRUGS (3)
  1. NUPLAZID [Suspect]
     Active Substance: PIMAVANSERIN TARTRATE
     Indication: Parkinson^s disease
     Dosage: TAKE 1 TABLET BY MOUTH 1 TIME A DAY AT BEDTIME FOR 4 DAYS
     Route: 048
     Dates: start: 202407
  2. NUPLAZID [Suspect]
     Active Substance: PIMAVANSERIN TARTRATE
     Dosage: TAKE 2 TABLETS BY MOUTH 1 TIME A DAY AT BEDTIME FOR 4 DAYS
     Route: 048
  3. NUPLAZID [Suspect]
     Active Substance: PIMAVANSERIN TARTRATE
     Dosage: TAKE 3 TABLETS BY MOUTH 1 TIME A DAY AT BEDTIME FOR 4 DAYS
     Route: 048

REACTIONS (3)
  - Middle insomnia [Unknown]
  - Inappropriate schedule of product administration [Unknown]
  - Hallucination [Unknown]
